FAERS Safety Report 23270269 (Version 1)
Quarter: 2023Q4

REPORT INFORMATION
  Report Type: Spontaneous
  Country: FR (occurrence: FR)
  Receive Date: 20231207
  Receipt Date: 20231207
  Transmission Date: 20240110
  Serious: Yes (Hospitalization)
  Sender: FDA-Public Use
  Company Number: None

PATIENT
  Age: 56 Year
  Sex: Female
  Weight: 94.199 kg

DRUGS (15)
  1. QUETIAPINE [Suspect]
     Active Substance: QUETIAPINE
     Indication: Bipolar I disorder
     Route: 048
     Dates: start: 20231024, end: 20231027
  2. OLANZAPINE [Suspect]
     Active Substance: OLANZAPINE
     Indication: Bipolar I disorder
     Dosage: DAILY DOSE: 30 MILLIGRAM
     Route: 048
     Dates: start: 20231011, end: 20231027
  3. OLANZAPINE [Suspect]
     Active Substance: OLANZAPINE
     Indication: Bipolar I disorder
     Dosage: DAILY DOSE: 15 MILLIGRAM
     Route: 048
     Dates: end: 20231011
  4. LAMOTRIGINE [Suspect]
     Active Substance: LAMOTRIGINE
     Indication: Bipolar I disorder
     Dosage: DAILY DOSE: 300 MILLIGRAM
     Route: 048
     Dates: end: 20231027
  5. TRIMEPRAZINE [Suspect]
     Active Substance: TRIMEPRAZINE
     Indication: Bipolar I disorder
     Dosage: 10.0MG INTERMITTENT?DAILY DOSE: 10 MILLIGRAM
     Route: 048
     Dates: start: 20230927, end: 20231003
  6. TRIMEPRAZINE [Suspect]
     Active Substance: TRIMEPRAZINE
     Indication: Bipolar I disorder
     Dosage: 15.0MG INTERMITTENT?DAILY DOSE: 15 MILLIGRAM
     Route: 048
     Dates: start: 20231003, end: 20231024
  7. TRIMEPRAZINE [Suspect]
     Active Substance: TRIMEPRAZINE
     Indication: Bipolar I disorder
     Dosage: 15.0MG INTERMITTENT
     Route: 048
     Dates: start: 20231024, end: 20231027
  8. DIAZEPAM [Suspect]
     Active Substance: DIAZEPAM
     Indication: Bipolar I disorder
     Dosage: 30.0MG INTERMITTENT
     Route: 048
     Dates: start: 20230927, end: 20231003
  9. DIAZEPAM [Suspect]
     Active Substance: DIAZEPAM
     Indication: Bipolar I disorder
     Route: 048
     Dates: start: 20231003, end: 20231023
  10. DIAZEPAM [Suspect]
     Active Substance: DIAZEPAM
     Indication: Bipolar I disorder
     Dosage: 10.0MG INTERMITTENT?DAILY DOSE: 10 MILLIGRAM
     Route: 048
     Dates: start: 20231023, end: 20231027
  11. LOXAPINE [Suspect]
     Active Substance: LOXAPINE
     Indication: Bipolar I disorder
     Dosage: 50.0MG INTERMITTENT
     Route: 048
     Dates: start: 20230928, end: 20231003
  12. LOXAPINE [Suspect]
     Active Substance: LOXAPINE
     Indication: Bipolar I disorder
     Dosage: DAILY DOSE: 50 MILLIGRAM
     Route: 048
     Dates: start: 20231003, end: 20231027
  13. ANETHOLTRITHION [Suspect]
     Active Substance: ANETHOLTRITHION
     Indication: Prophylaxis
     Route: 048
     Dates: start: 20231024, end: 20231027
  14. TROPATEPINE HYDROCHLORIDE [Concomitant]
     Active Substance: TROPATEPINE HYDROCHLORIDE
     Indication: Prophylaxis
     Dosage: 10.0MG INTERMITTENT
     Route: 048
     Dates: start: 20231014, end: 20231108
  15. PANTOPRAZOLE [Concomitant]
     Active Substance: PANTOPRAZOLE
     Indication: Prophylaxis
     Dosage: DAILY DOSE: 40 MILLIGRAM
     Route: 048
     Dates: start: 20230927

REACTIONS (3)
  - Dyspnoea [Recovered/Resolved]
  - Somnolence [Recovered/Resolved]
  - Confusional state [Recovered/Resolved]

NARRATIVE: CASE EVENT DATE: 20231026
